FAERS Safety Report 6743162-3 (Version None)
Quarter: 2010Q2

REPORT INFORMATION
  Report Type: 
  Country: None (occurrence: None)
  Receive Date: 20100527
  Receipt Date: 20100517
  Transmission Date: 20101027
  Serious: Yes (Other)
  Sender: FDA-Public Use
  Company Number: US-ASTRAZENECA-2007UW11917

PATIENT
  Sex: Female

DRUGS (7)
  1. SEROQUEL [Suspect]
     Dosage: 25 MG TO 100 MG
     Route: 048
     Dates: start: 20021118
  2. TOPAMAX [Concomitant]
     Dates: start: 20021118
  3. LIPITOR [Concomitant]
     Dates: start: 20021118
  4. BUSPIRONE HCL [Concomitant]
     Dates: start: 20021118
  5. SUCRALFATE [Concomitant]
     Dates: start: 20021119
  6. FUROSEMIDE [Concomitant]
     Dosage: 40 MG TO 80 MG
     Dates: start: 20021216
  7. CELEXA [Concomitant]
     Dates: start: 20021219

REACTIONS (5)
  - DIABETES MELLITUS [None]
  - DIABETES MELLITUS INADEQUATE CONTROL [None]
  - NEPHROPATHY [None]
  - NEUROPATHY PERIPHERAL [None]
  - TYPE 1 DIABETES MELLITUS [None]
